FAERS Safety Report 7645601-2 (Version None)
Quarter: 2011Q3

REPORT INFORMATION
  Report Type: 
  Country: None (occurrence: None)
  Receive Date: 20110729
  Receipt Date: 20110722
  Transmission Date: 20111222
  Serious: No
  Sender: FDA-Public Use
  Company Number: US-PFIZER INC-2011167359

PATIENT
  Sex: Female

DRUGS (1)
  1. SUTENT [Suspect]
     Dosage: UNK

REACTIONS (5)
  - GINGIVAL SWELLING [None]
  - SKIN LESION [None]
  - OEDEMA MOUTH [None]
  - RASH MACULAR [None]
  - SKIN DISCOLOURATION [None]
